FAERS Safety Report 5701889-6 (Version None)
Quarter: 2008Q2

REPORT INFORMATION
  Report Type: 
  Country: None (occurrence: None)
  Receive Date: 20080411
  Receipt Date: 20080402
  Transmission Date: 20081010
  Serious: Yes (Other)
  Sender: FDA-Public Use
  Company Number: PHHY2008NL04578

PATIENT
  Sex: Female

DRUGS (1)
  1. ACLASTA [Suspect]
     Dates: start: 20080116

REACTIONS (5)
  - ARTHRALGIA [None]
  - ASTHENIA [None]
  - MOBILITY DECREASED [None]
  - MUSCULAR WEAKNESS [None]
  - MYALGIA [None]
